FAERS Safety Report 25358337 (Version 1)
Quarter: 2025Q2

REPORT INFORMATION
  Report Type: Spontaneous
  Country: US (occurrence: US)
  Receive Date: 20250526
  Receipt Date: 20250526
  Transmission Date: 20250717
  Serious: No
  Sender: MALLINCKRODT
  Company Number: US-MALLINCKRODT-MNK202501867

PATIENT
  Age: 48 Year
  Sex: Female

DRUGS (1)
  1. CORTICOTROPIN [Suspect]
     Active Substance: CORTICOTROPIN
     Indication: Rheumatoid arthritis
     Route: 058
     Dates: start: 202501

REACTIONS (5)
  - Fibromyalgia [Unknown]
  - Inflammation [Unknown]
  - Sensitivity to weather change [Unknown]
  - Intervertebral disc degeneration [Unknown]
  - Injection site bruising [Recovered/Resolved]

NARRATIVE: CASE EVENT DATE: 20250101
